FAERS Safety Report 23552420 (Version 2)
Quarter: 2024Q1

REPORT INFORMATION
  Report Type: Report from Study
  Country: NL (occurrence: NL)
  Receive Date: 20240222
  Receipt Date: 20240322
  Transmission Date: 20240410
  Serious: Yes (Other)
  Sender: FDA-Public Use
  Company Number: NL-ARBOR PHARMACEUTICALS, LLC-NL-2024AZR000171

PATIENT
  Age: 64 Year
  Sex: Male

DRUGS (6)
  1. TRIPTODUR [Suspect]
     Active Substance: TRIPTORELIN
     Indication: Prostate cancer
     Dosage: 0.125 MILLIGRAM(S) (22.5 MILLIGRAM(S), 1 IN 6 MONTH) TRIPTODUR INJECTION 22.5MG SOLVENT 2ML
     Route: 030
     Dates: start: 20220817
  2. TRIPTODUR [Suspect]
     Active Substance: TRIPTORELIN
     Dosage: 0.125 MILLIGRAM(S) (22.5 MILLIGRAM(S), 1 IN 6 MONTH) TRIPTODUR INJECTION 22.5MG SOLVENT 2ML
     Route: 030
     Dates: start: 20230209
  3. TRIPTODUR [Suspect]
     Active Substance: TRIPTORELIN
     Dosage: 0.125 MILLIGRAM(S) (22.5 MILLIGRAM(S), 1 IN 6 MONTH) TRIPTODUR INJECTION 22.5MG SOLVENT 2ML
     Route: 030
     Dates: start: 20230811
  4. TRIPTODUR [Suspect]
     Active Substance: TRIPTORELIN
     Dosage: 0.125 MILLIGRAM(S) (22.5 MILLIGRAM(S), 1 IN 6 MONTH) TRIPTODUR INJECTION 22.5MG SOLVENT 2ML
     Route: 030
     Dates: start: 20240212
  5. TRIPTODUR [Suspect]
     Active Substance: TRIPTORELIN
  6. TRIPTODUR [Suspect]
     Active Substance: TRIPTORELIN

REACTIONS (1)
  - Hypoglycaemia [Recovered/Resolved]

NARRATIVE: CASE EVENT DATE: 20230811
